FAERS Safety Report 6417039-7 (Version None)
Quarter: 2009Q4

REPORT INFORMATION
  Report Type: 
  Country: None (occurrence: None)
  Receive Date: 20091026
  Receipt Date: 20091013
  Transmission Date: 20100525
  Serious: Yes (Other)
  Sender: FDA-Public Use
  Company Number: GXKR2009SE06002

PATIENT
  Age: 65 Year
  Sex: Female

DRUGS (2)
  1. SIMVASTATIN [Suspect]
     Indication: BLOOD PRESSURE INCREASED
     Dosage: ORAL
     Route: 048
  2. SIMVASTATIN [Suspect]
     Indication: HYPERCHOLESTEROLAEMIA
     Dosage: ORAL
     Route: 048

REACTIONS (2)
  - MYOSITIS [None]
  - NECROSIS [None]
